FAERS Safety Report 9726968 (Version 1)
Quarter: 2013Q4

REPORT INFORMATION
  Report Type: Spontaneous
  Country: US (occurrence: US)
  Receive Date: 20131203
  Receipt Date: 20131203
  Transmission Date: 20140711
  Serious: No
  Sender: FDA-Public Use
  Company Number: US-NOVEN-13US007383

PATIENT
  Age: 47 Year
  Sex: Female

DRUGS (4)
  1. FENTANYL [Suspect]
     Indication: PAIN
     Dosage: 25 UG/HR, UNK
     Route: 062
     Dates: start: 201307
  2. MUSCLE RELAXANTS [Concomitant]
     Dosage: UNK
  3. KLONOPIN [Concomitant]
     Dosage: UNK
  4. CHOLESTEROL [Concomitant]
     Dosage: UNK

REACTIONS (2)
  - Inadequate analgesia [Not Recovered/Not Resolved]
  - Product quality issue [Not Recovered/Not Resolved]
